FAERS Safety Report 7276431-1 (Version None)
Quarter: 2011Q1

REPORT INFORMATION
  Report Type: 
  Country: None (occurrence: None)
  Receive Date: 20110204
  Receipt Date: 20110203
  Transmission Date: 20110831
  Serious: Yes (Death, Hospitalization)
  Sender: FDA-Public Use
  Company Number: SE-ABBOTT-11P-150-0702157-00

PATIENT
  Sex: Female

DRUGS (2)
  1. METHOTREXATE [Concomitant]
     Indication: PRODUCT USED FOR UNKNOWN INDICATION
  2. HUMIRA [Suspect]
     Indication: RHEUMATOID ARTHRITIS
     Route: 058
     Dates: start: 20071115, end: 20100207

REACTIONS (6)
  - PYREXIA [None]
  - ABDOMINAL PAIN [None]
  - METASTATIC NEOPLASM [None]
  - GRANULOMA [None]
  - SARCOIDOSIS [None]
  - C-REACTIVE PROTEIN INCREASED [None]
